FAERS Safety Report 18999994 (Version 1)
Quarter: 2021Q1

REPORT INFORMATION
  Report Type: Spontaneous
  Country: FR (occurrence: FR)
  Receive Date: 20210312
  Receipt Date: 20210312
  Transmission Date: 20210420
  Serious: Yes (Hospitalization, Other)
  Sender: FDA-Public Use
  Company Number: FR-JNJFOC-20191008803

PATIENT
  Sex: Female

DRUGS (19)
  1. ACUPAN [Suspect]
     Active Substance: NEFOPAM HYDROCHLORIDE
     Indication: PRODUCT USED FOR UNKNOWN INDICATION
     Route: 062
     Dates: start: 20080303, end: 20080310
  2. ARACYTINE [Suspect]
     Active Substance: CYTARABINE
     Dosage: FIRST CYCLE
     Route: 064
     Dates: start: 20080220, end: 20080226
  3. GYNO?PEVARYL [Suspect]
     Active Substance: ECONAZOLE NITRATE
     Indication: PRODUCT USED FOR UNKNOWN INDICATION
     Route: 064
     Dates: start: 20080226, end: 20080303
  4. AMIKACINE                          /00391001/ [Suspect]
     Active Substance: AMIKACIN
     Indication: PYREXIA
     Route: 064
     Dates: start: 20080303, end: 20080304
  5. SPASFON                            /00765801/ [Suspect]
     Active Substance: PHLOROGLUCINOL\1,3,5-TRIMETHOXYBENZENE
     Indication: PRODUCT USED FOR UNKNOWN INDICATION
     Route: 064
     Dates: start: 20080401, end: 20080405
  6. PRIMPERAN [Suspect]
     Active Substance: METOCLOPRAMIDE HYDROCHLORIDE
     Indication: PRODUCT USED FOR UNKNOWN INDICATION
     Route: 064
     Dates: start: 20080220, end: 20080226
  7. VANCOMYCIN [Suspect]
     Active Substance: VANCOMYCIN
     Indication: PYREXIA
     Route: 064
     Dates: start: 20080227, end: 20080228
  8. IMODIUM [Suspect]
     Active Substance: LOPERAMIDE HYDROCHLORIDE
     Indication: PRODUCT USED FOR UNKNOWN INDICATION
     Route: 064
     Dates: start: 20080307, end: 20080308
  9. ARACYTINE [Suspect]
     Active Substance: CYTARABINE
     Indication: ACUTE MYELOID LEUKAEMIA
     Dosage: SECOND CYCLE
     Route: 064
     Dates: start: 20080327, end: 20080330
  10. CONTRAMAL [Suspect]
     Active Substance: TRAMADOL HYDROCHLORIDE
     Indication: PRODUCT USED FOR UNKNOWN INDICATION
     Dosage: UNK UNK, TOTAL; IN TOTAL
     Route: 064
     Dates: start: 20080227, end: 20080227
  11. TARGOCID [Suspect]
     Active Substance: TEICOPLANIN
     Indication: PRODUCT USED FOR UNKNOWN INDICATION
     Route: 064
     Dates: start: 20080304, end: 20080306
  12. PLITICAN [Suspect]
     Active Substance: ALIZAPRIDE HYDROCHLORIDE
     Indication: ACUTE MYELOID LEUKAEMIA
     Dosage: DAILY DOSE FREQ.: DAILY
     Route: 064
     Dates: start: 20080328, end: 20080330
  13. TAZOCILLINE [Suspect]
     Active Substance: PIPERACILLIN SODIUM\TAZOBACTAM SODIUM
     Indication: PYREXIA
     Route: 064
     Dates: start: 20080226, end: 20080310
  14. CERUBIDINE [Suspect]
     Active Substance: DAUNORUBICIN HYDROCHLORIDE
     Indication: ACUTE MYELOID LEUKAEMIA
     Route: 064
     Dates: start: 20080220, end: 20080222
  15. PERFALGAN [Suspect]
     Active Substance: ACETAMINOPHEN
     Indication: PRODUCT USED FOR UNKNOWN INDICATION
     Route: 064
     Dates: start: 20080303, end: 20080304
  16. TAVANIC [Suspect]
     Active Substance: LEVOFLOXACIN
     Route: 064
     Dates: start: 20080328, end: 20080414
  17. DEBRIDAT                           /00465202/ [Suspect]
     Active Substance: TRIMEBUTINE
     Indication: PRODUCT USED FOR UNKNOWN INDICATION
     Route: 064
     Dates: start: 20080307, end: 20080308
  18. SMECTA [Suspect]
     Active Substance: MONTMORILLONITE
     Indication: PRODUCT USED FOR UNKNOWN INDICATION
     Route: 064
     Dates: start: 20080228, end: 20080307
  19. ATARAX [Suspect]
     Active Substance: HYDROXYZINE HYDROCHLORIDE
     Indication: PRODUCT USED FOR UNKNOWN INDICATION
     Dosage: UNK UNK, TOTAL; IN TOTAL
     Route: 064
     Dates: start: 20080306, end: 20080306

REACTIONS (10)
  - Jaundice neonatal [Unknown]
  - Periventricular leukomalacia [Not Recovered/Not Resolved]
  - Staphylococcal infection [Unknown]
  - Foetal exposure during pregnancy [Recovered/Resolved]
  - Neonatal respiratory distress syndrome [Unknown]
  - Foetal growth restriction [Recovered/Resolved]
  - Anaemia [Recovered/Resolved]
  - Premature baby [Recovered/Resolved]
  - Foetal arrhythmia [Recovered/Resolved]
  - Low birth weight baby [Unknown]

NARRATIVE: CASE EVENT DATE: 20080220
